FAERS Safety Report 25260443 (Version 1)
Quarter: 2025Q2

REPORT INFORMATION
  Report Type: Spontaneous
  Country: US (occurrence: US)
  Receive Date: 20250501
  Receipt Date: 20250501
  Transmission Date: 20250717
  Serious: No
  Sender: MYLAN
  Company Number: US-MYLANLABS-2025M1035062

PATIENT
  Sex: Female
  Weight: 68.04 kg

DRUGS (8)
  1. WIXELA INHUB [Suspect]
     Active Substance: FLUTICASONE PROPIONATE\SALMETEROL XINAFOATE
     Indication: Asthma
     Dosage: 250 MICROGRAM, BID (ONE PUFF TWICE A DAY)
     Dates: start: 2025
  2. WIXELA INHUB [Suspect]
     Active Substance: FLUTICASONE PROPIONATE\SALMETEROL XINAFOATE
     Dosage: 250 MICROGRAM, BID (ONE PUFF TWICE A DAY)
     Dates: start: 2025
  3. WIXELA INHUB [Suspect]
     Active Substance: FLUTICASONE PROPIONATE\SALMETEROL XINAFOATE
     Dosage: 250 MICROGRAM, BID (ONE PUFF TWICE A DAY)
     Route: 055
     Dates: start: 2025
  4. WIXELA INHUB [Suspect]
     Active Substance: FLUTICASONE PROPIONATE\SALMETEROL XINAFOATE
     Dosage: 250 MICROGRAM, BID (ONE PUFF TWICE A DAY)
     Route: 055
     Dates: start: 2025
  5. WIXELA INHUB [Suspect]
     Active Substance: FLUTICASONE PROPIONATE\SALMETEROL XINAFOATE
     Dosage: 250 MICROGRAM, BID (ONE PUFF TWICE A DAY)
     Dates: start: 2025
  6. WIXELA INHUB [Suspect]
     Active Substance: FLUTICASONE PROPIONATE\SALMETEROL XINAFOATE
     Dosage: 250 MICROGRAM, BID (ONE PUFF TWICE A DAY)
     Dates: start: 2025
  7. WIXELA INHUB [Suspect]
     Active Substance: FLUTICASONE PROPIONATE\SALMETEROL XINAFOATE
     Dosage: 250 MICROGRAM, BID (ONE PUFF TWICE A DAY)
     Route: 055
     Dates: start: 2025
  8. WIXELA INHUB [Suspect]
     Active Substance: FLUTICASONE PROPIONATE\SALMETEROL XINAFOATE
     Dosage: 250 MICROGRAM, BID (ONE PUFF TWICE A DAY)
     Route: 055
     Dates: start: 2025

REACTIONS (11)
  - Adverse drug reaction [Unknown]
  - Joint swelling [Unknown]
  - Peripheral swelling [Unknown]
  - Flushing [Unknown]
  - Sunburn [Unknown]
  - Erythema [Unknown]
  - Candida infection [Unknown]
  - Oral mucosal blistering [Unknown]
  - Infection [Unknown]
  - Device difficult to use [Unknown]
  - Product design issue [Unknown]

NARRATIVE: CASE EVENT DATE: 20250101
